FAERS Safety Report 10086153 (Version 1)
Quarter: 2014Q2

REPORT INFORMATION
  Report Type: Spontaneous
  Country: IT (occurrence: IT)
  Receive Date: 20140418
  Receipt Date: 20140418
  Transmission Date: 20141212
  Serious: Yes (Other)
  Sender: FDA-Public Use
  Company Number: IT-TEVA-474580ISR

PATIENT
  Age: 65 Year
  Sex: Male
  Weight: 82 kg

DRUGS (8)
  1. GLUCOBAY - 50 MG COMPRESSE [Concomitant]
     Indication: TYPE 1 DIABETES MELLITUS
     Dosage: 50 MILLIGRAM DAILY;
  2. IPSTYL - 120 MG SOLUZIONE INIETTABILE PER USO SOTTOCUTANEO [Concomitant]
     Indication: PRODUCT USED FOR UNKNOWN INDICATION
  3. TIROSINT [Concomitant]
     Indication: PRODUCT USED FOR UNKNOWN INDICATION
     Dosage: 150 MICROGRAM DAILY;
  4. LANTUS [Concomitant]
     Indication: TYPE 1 DIABETES MELLITUS
     Dosage: 22 DOSAGE FORMS DAILY;
  5. METFORMIN HYDROCHLORIDE [Suspect]
     Indication: TYPE 1 DIABETES MELLITUS
     Dosage: 400 MILLIGRAM DAILY;
     Route: 048
  6. CAPRELSA - 300MG COMPRESSA RIVESTITA CON FILM [Suspect]
     Indication: MEDULLARY THYROID CANCER
     Dosage: 300 MILLIGRAM DAILY;
     Route: 048
     Dates: start: 20140128, end: 20140317
  7. TRIATEC - 5 MG COMPRESSE [Concomitant]
     Indication: HYPERTENSION
     Dosage: 5 MILLIGRAM DAILY;
  8. GLIBOMET - 400 MG + 5 MG COMPRESSE RIVESTITE CON FILM [Concomitant]
     Indication: TYPE 1 DIABETES MELLITUS
     Dosage: 1 DOSAGE FORMS DAILY;
     Route: 048

REACTIONS (2)
  - Renal failure [Recovering/Resolving]
  - Blood creatinine increased [Recovering/Resolving]
